FAERS Safety Report 9223341 (Version 1)
Quarter: 2013Q2

REPORT INFORMATION
  Report Type: Spontaneous
  Country: US (occurrence: US)
  Receive Date: 20130410
  Receipt Date: 20130410
  Transmission Date: 20140414
  Serious: Yes (Other)
  Sender: FDA-Public Use
  Company Number: US-BRISTOL-MYERS SQUIBB COMPANY-18733667

PATIENT
  Age: 51 Year
  Sex: Male

DRUGS (3)
  1. WARFARIN SODIUM [Suspect]
  2. LETAIRIS [Suspect]
     Dosage: TABS
     Route: 048
  3. MULTIVITAMINS [Concomitant]

REACTIONS (1)
  - Visual impairment [Unknown]
